FAERS Safety Report 13939324 (Version 3)
Quarter: 2019Q1

REPORT INFORMATION
  Report Type: Report from Study
  Country: US (occurrence: US)
  Receive Date: 20170906
  Receipt Date: 20190206
  Transmission Date: 20190417
  Serious: Yes (Hospitalization, Other)
  Sender: FDA-Public Use
  Company Number: US-BRISTOL-MYERS SQUIBB COMPANY-BMS-2017-078343

PATIENT
  Sex: Male

DRUGS (1)
  1. DASATINIB. [Suspect]
     Active Substance: DASATINIB
     Indication: CHRONIC MYELOID LEUKAEMIA
     Dosage: 70 MG, QD
     Route: 048
     Dates: start: 201611

REACTIONS (3)
  - Hospitalisation [Recovered/Resolved]
  - Cardiac disorder [Unknown]
  - Prescribed underdose [Unknown]
